FAERS Safety Report 5110274-X (Version None)
Quarter: 2006Q3

REPORT INFORMATION
  Report Type: 
  Country: None (occurrence: None)
  Receive Date: 20060921
  Receipt Date: 20060915
  Transmission Date: 20061208
  Serious: Yes (Hospitalization)
  Sender: FDA-Public Use
  Company Number: JP-JPN-A200603722

PATIENT
  Sex: Male

DRUGS (4)
  1. ALKERAN [Suspect]
     Indication: MULTIPLE MYELOMA
     Dosage: 4MG PER DAY
     Route: 048
     Dates: end: 20060813
  2. PREDONINE [Concomitant]
     Route: 065
  3. PRIMOBOLAN-DEPOT INJ [Concomitant]
     Route: 065
  4. ZANTAC [Concomitant]
     Route: 065

REACTIONS (2)
  - ANAEMIA [None]
  - CYSTITIS HAEMORRHAGIC [None]
